FAERS Safety Report 8323100-2 (Version None)
Quarter: 2012Q2

REPORT INFORMATION
  Report Type: 
  Country: None (occurrence: None)
  Receive Date: 20120430
  Receipt Date: 20120423
  Transmission Date: 20120825
  Serious: Yes (Hospitalization)
  Sender: FDA-Public Use
  Company Number: FR-PFIZER INC-2010SA001291

PATIENT
  Age: 77 Year
  Sex: Male

DRUGS (10)
  1. FLUOROURACIL [Suspect]
     Indication: RECTAL CANCER RECURRENT
     Dosage: EVERY CYCLE
     Route: 042
     Dates: start: 20090106
  2. PANTOPRAZOLE SODIUM [Concomitant]
     Dosage: UNK
  3. ORAMORPH SR [Concomitant]
     Dosage: UNK
  4. ELOXATIN [Suspect]
     Indication: RECTAL CANCER RECURRENT
     Dosage: EVERY CYCLE
     Route: 042
     Dates: start: 20090106
  5. GRANOCYTE [Concomitant]
     Dosage: UNK
     Dates: start: 20090106
  6. TANAKAN [Concomitant]
     Dosage: UNK
  7. PAROXETINE HYDROCHLORIDE [Concomitant]
     Dosage: UNK
  8. VASTAREL ^SERVIER^ [Concomitant]
     Dosage: UNK
  9. IRINOTECAN HCL [Suspect]
     Indication: RECTAL CANCER RECURRENT
     Dosage: EVERY CYCLE
     Route: 042
     Dates: start: 20090106
  10. AVASTIN [Concomitant]
     Dosage: UNK
     Dates: start: 20090106

REACTIONS (4)
  - ATRIAL FIBRILLATION [None]
  - FEBRILE NEUTROPENIA [None]
  - DIARRHOEA [None]
  - PANCYTOPENIA [None]
